FAERS Safety Report 6994470-2 (Version None)
Quarter: 2010Q3

REPORT INFORMATION
  Report Type: 
  Country: None (occurrence: None)
  Receive Date: 20100917
  Receipt Date: 20100906
  Transmission Date: 20110219
  Serious: No
  Sender: FDA-Public Use
  Company Number: ES-JNJFOC-20100902868

PATIENT
  Age: 74 Year
  Sex: Female
  Weight: 62 kg

DRUGS (6)
  1. DURAGESIC-100 [Suspect]
     Indication: BACK PAIN
     Route: 062
  2. DURAGESIC-100 [Suspect]
     Route: 062
  3. DURAGESIC-100 [Suspect]
     Route: 062
  4. LORAZEPAM [Concomitant]
     Indication: SLEEP DISORDER THERAPY
     Route: 065
  5. CITALOPRAM HYDROBROMIDE [Concomitant]
     Indication: DEPRESSION
     Route: 065
  6. NSAID [Concomitant]
     Indication: PRODUCT USED FOR UNKNOWN INDICATION
     Route: 065

REACTIONS (2)
  - SOMNOLENCE [None]
  - WRONG TECHNIQUE IN DRUG USAGE PROCESS [None]
